FAERS Safety Report 14461476 (Version 2)
Quarter: 2018Q1

REPORT INFORMATION
  Report Type: Spontaneous
  Country: AR (occurrence: AR)
  Receive Date: 20180130
  Receipt Date: 20180215
  Transmission Date: 20180509
  Serious: Yes (Hospitalization, Other)
  Sender: FDA-Public Use
  Company Number: PHHY2018AR013781

PATIENT
  Sex: Female

DRUGS (2)
  1. TASIGNA [Suspect]
     Active Substance: NILOTINIB
     Indication: CHRONIC MYELOID LEUKAEMIA
     Dosage: 150 MG, TID
     Route: 065
     Dates: start: 2015, end: 2017
  2. SPRYCEL [Suspect]
     Active Substance: DASATINIB
     Indication: CHRONIC MYELOID LEUKAEMIA
     Dosage: UNK
     Route: 065

REACTIONS (10)
  - Oral infection [Unknown]
  - Visual field tests abnormal [Unknown]
  - Pyrexia [Unknown]
  - Visual impairment [Unknown]
  - Swelling [Unknown]
  - Decreased appetite [Unknown]
  - Malignant neoplasm progression [Not Recovered/Not Resolved]
  - Feeling abnormal [Unknown]
  - Chronic myeloid leukaemia [Not Recovered/Not Resolved]
  - Presbyopia [Unknown]

NARRATIVE: CASE EVENT DATE: 2017
